FAERS Safety Report 5008821-1 (Version None)
Quarter: 2006Q2

REPORT INFORMATION
  Report Type: 
  Country: None (occurrence: None)
  Receive Date: 20060518
  Receipt Date: 20060508
  Transmission Date: 20061013
  Serious: Yes (Death)
  Sender: FDA-Public Use
  Company Number: 2006-01841

PATIENT
  Age: 41 Year
  Sex: Male
  Weight: 126.1 kg

DRUGS (11)
  1. CARISOPRODOL [Suspect]
     Indication: FIBROMYALGIA
     Dosage: 350 MG, Q6H PRN, ORAL
     Route: 048
     Dates: start: 20050501, end: 20060120
  2. FENTANYL [Suspect]
     Indication: FIBROMYALGIA
     Dosage: 75 MCG, Q1H, TRANSDERMAL; 50 MCG, Q1H, TRANSDERMAL
     Route: 062
     Dates: start: 20050701, end: 20060119
  3. FENTANYL [Suspect]
     Indication: FIBROMYALGIA
     Dosage: 75 MCG, Q1H, TRANSDERMAL; 50 MCG, Q1H, TRANSDERMAL
     Route: 062
     Dates: start: 20060119, end: 20060120
  4. LASIX [Concomitant]
  5. LIPITOR [Concomitant]
  6. UNSP. BLOOD PRESSURE MED [Concomitant]
  7. OXYCODONE (OXYCODONE) [Concomitant]
  8. HYDROCHLOROTHIAZIDE [Concomitant]
  9. KLONOPIN [Concomitant]
  10. TRAZODONE HCL [Concomitant]
  11. PROZAC [Concomitant]

REACTIONS (11)
  - DRUG TOXICITY [None]
  - DYSPNOEA [None]
  - HYPERSOMNIA [None]
  - HYPERTROPHIC CARDIOMYOPATHY [None]
  - OEDEMA [None]
  - OEDEMA PERIPHERAL [None]
  - OVERDOSE [None]
  - PITTING OEDEMA [None]
  - PULMONARY OEDEMA [None]
  - SUDDEN DEATH [None]
  - URINARY RETENTION [None]
